FAERS Safety Report 7251098-7 (Version None)
Quarter: 2011Q1

REPORT INFORMATION
  Report Type: 
  Country: None (occurrence: None)
  Receive Date: 20110128
  Receipt Date: 20101012
  Transmission Date: 20110831
  Serious: Yes (Hospitalization, Other)
  Sender: FDA-Public Use
  Company Number: US-BAYER-201028668NA

PATIENT
  Sex: Female
  Weight: 99.773 kg

DRUGS (15)
  1. OCELLA [Suspect]
     Indication: POLYCYSTIC OVARIES
  2. YASMIN [Suspect]
     Indication: POLYCYSTIC OVARIES
  3. OCELLA [Suspect]
     Indication: MENORRHAGIA
     Dosage: UNK
     Dates: start: 20080627, end: 20080710
  4. METFORMIN [Concomitant]
     Indication: POLYCYSTIC OVARIES
     Dosage: 500 MG, BID
     Dates: start: 20051101
  5. FEXOFENADINE HCL [Concomitant]
     Indication: HYPERSENSITIVITY
     Dosage: DAILY
     Dates: start: 20060301
  6. YASMIN [Suspect]
     Indication: MENORRHAGIA
     Dosage: UNK
     Dates: start: 20051101, end: 20080601
  7. GLUCOPHAGE [Concomitant]
  8. MIRALAX [Concomitant]
  9. SINGULAIR [Concomitant]
     Indication: HYPERSENSITIVITY
     Dosage: DAILY
     Dates: start: 20060401
  10. ALLEGRA [Concomitant]
  11. FLEXERIL [Concomitant]
  12. METHYLPREDNISOLONE [Concomitant]
     Dosage: UNK
     Dates: start: 20080301, end: 20080701
  13. NASONEX [Concomitant]
     Indication: HYPERSENSITIVITY
     Dosage: UNK
     Dates: start: 20060401
  14. DAYPRO [Concomitant]
  15. AMBIEN [Concomitant]

REACTIONS (9)
  - GROIN PAIN [None]
  - DEEP VEIN THROMBOSIS [None]
  - DYSPNOEA [None]
  - OEDEMA PERIPHERAL [None]
  - FATIGUE [None]
  - PULMONARY EMBOLISM [None]
  - PULMONARY INFARCTION [None]
  - BACK PAIN [None]
  - MUSCULOSKELETAL DISCOMFORT [None]
